FAERS Safety Report 9300936 (Version 2)
Quarter: 2013Q2

REPORT INFORMATION
  Report Type: Report from Study
  Country: IS (occurrence: IS)
  Receive Date: 20130521
  Receipt Date: 20130530
  Transmission Date: 20140414
  Serious: Yes (Death, Other)
  Sender: FDA-Public Use
  Company Number: IS-PFIZER INC-2013147934

PATIENT
  Age: 82 Year
  Sex: 0

DRUGS (8)
  1. AMOXICILLIN [Suspect]
     Indication: HELICOBACTER INFECTION
     Dosage: UNK
  2. AMOXICILLIN [Suspect]
     Indication: OESOPHAGEAL CANDIDIASIS
  3. CLARITHROMYCIN [Suspect]
     Indication: HELICOBACTER INFECTION
     Dosage: UNK
  4. CLARITHROMYCIN [Suspect]
     Indication: OESOPHAGEAL CANDIDIASIS
  5. FLUCONAZOLE [Suspect]
     Indication: HELICOBACTER INFECTION
     Dosage: UNK
  6. FLUCONAZOLE [Suspect]
     Indication: OESOPHAGEAL CANDIDIASIS
  7. RABEPRAZOLE SODIUM [Suspect]
     Indication: HELICOBACTER INFECTION
     Dosage: UNK
  8. RABEPRAZOLE SODIUM [Suspect]
     Indication: OESOPHAGEAL CANDIDIASIS

REACTIONS (3)
  - Renal failure [Fatal]
  - Cardiac failure chronic [Fatal]
  - Drug-induced liver injury [Unknown]
